FAERS Safety Report 4651226-3 (Version None)
Quarter: 2005Q2

REPORT INFORMATION
  Report Type: 
  Country: None (occurrence: None)
  Receive Date: 20050503
  Receipt Date: 20050422
  Transmission Date: 20051028
  Serious: Yes (Other)
  Sender: FDA-Public Use
  Company Number: PHBS2005CA05894

PATIENT
  Age: 62 Year
  Sex: Female

DRUGS (3)
  1. AREDIA [Suspect]
     Indication: OSTEOPOROSIS
     Dosage: UNK, Q3MO
     Dates: start: 20040201
  2. NEXIUM [Concomitant]
  3. CHARDON-MARIE [Concomitant]

REACTIONS (4)
  - LIVER DISORDER [None]
  - NAUSEA [None]
  - OCULAR ICTERUS [None]
  - STOMACH DISCOMFORT [None]
